FAERS Safety Report 23781467 (Version 1)
Quarter: 2024Q2

REPORT INFORMATION
  Report Type: Spontaneous
  Country: US (occurrence: US)
  Receive Date: 20240425
  Receipt Date: 20240425
  Transmission Date: 20240716
  Serious: Yes (Other)
  Sender: FDA-Public Use
  Company Number: US-SPECGX-T202400976

PATIENT
  Sex: Female

DRUGS (4)
  1. DEXTROAMPHETAMINE SULFATE [Suspect]
     Active Substance: DEXTROAMPHETAMINE SULFATE
     Indication: Multiple sclerosis
     Dosage: 30 MILLIGRAM
     Route: 065
  2. DEXTROAMPHETAMINE SULFATE [Suspect]
     Active Substance: DEXTROAMPHETAMINE SULFATE
     Indication: Hyperaesthesia
     Dosage: 45 MILLIGRAM
     Route: 065
  3. DEXTROAMPHETAMINE SULFATE [Suspect]
     Active Substance: DEXTROAMPHETAMINE SULFATE
     Indication: Oedema
  4. DEXTROAMPHETAMINE SULFATE [Suspect]
     Active Substance: DEXTROAMPHETAMINE SULFATE
     Indication: Arthralgia

REACTIONS (4)
  - Breast cancer [Unknown]
  - Cancer surgery [Unknown]
  - Arthralgia [Recovered/Resolved]
  - Drug effective for unapproved indication [Unknown]
